FAERS Safety Report 20497137 (Version 1)
Quarter: 2022Q1

REPORT INFORMATION
  Report Type: Spontaneous
  Country: CO (occurrence: CO)
  Receive Date: 20220221
  Receipt Date: 20220221
  Transmission Date: 20220424
  Serious: Yes (Death, Other)
  Sender: FDA-Public Use
  Company Number: CO-Fresenius Kabi-FK202201944

PATIENT
  Age: 23 Year
  Sex: Female

DRUGS (2)
  1. HEPARIN SODIUM [Suspect]
     Active Substance: HEPARIN SODIUM
     Indication: Anticoagulant therapy
     Route: 040
  2. HEPARIN SODIUM [Suspect]
     Active Substance: HEPARIN SODIUM
     Dosage: CONTINUOUS AFTER 8 HOURS OF CANNULATION
     Route: 042

REACTIONS (4)
  - Brain death [Fatal]
  - Exposure during pregnancy [Unknown]
  - Cerebral haemorrhage [Unknown]
  - Subarachnoid haemorrhage [Unknown]
